FAERS Safety Report 14195039 (Version 1)
Quarter: 2017Q4

REPORT INFORMATION
  Report Type: Spontaneous
  Country: UA (occurrence: UA)
  Receive Date: 20171116
  Receipt Date: 20171116
  Transmission Date: 20180321
  Serious: Yes (Other)
  Sender: FDA-Public Use
  Company Number: UA-BAYER-2017-215671

PATIENT
  Age: 24 Year
  Sex: Female

DRUGS (1)
  1. DZHAZ PLUS (DROSPIRENONE\ETHINYL ESTRADIOL\LEVOMEFOLATE CALCIUM) [Suspect]
     Active Substance: DROSPIRENONE\ETHINYL ESTRADIOL\LEVOMEFOLATE CALCIUM
     Route: 048

REACTIONS (1)
  - Bipolar I disorder [None]
